FAERS Safety Report 5587298-1 (Version None)
Quarter: 2007Q4

REPORT INFORMATION
  Report Type: 
  Country: None (occurrence: None)
  Receive Date: 20071207
  Receipt Date: 20061211
  Transmission Date: 20080405
  Serious: Yes (Other)
  Sender: FDA-Public Use
  Company Number: 2006152930

PATIENT
  Age: 79 Year
  Sex: Male
  Weight: 79.4 kg

DRUGS (8)
  1. VIAGRA [Suspect]
     Indication: ERECTILE DYSFUNCTION
     Dosage: 50 MG (50 MG)
  2. COREG [Concomitant]
  3. DIGOXIN [Concomitant]
  4. COZAAR [Concomitant]
  5. ZOCOR [Concomitant]
  6. MULTI-VITAMINS [Concomitant]
  7. SAW PALMETTO (SAW PALMETTO) [Concomitant]
  8. VITAMIN C (VITAMIN C) [Concomitant]

REACTIONS (2)
  - DIZZINESS [None]
  - HYPOTENSION [None]
